FAERS Safety Report 5636600-0 (Version None)
Quarter: 2008Q1

REPORT INFORMATION
  Report Type: 
  Country: None (occurrence: None)
  Receive Date: 20080219
  Receipt Date: 20080219
  Transmission Date: 20080703
  Serious: Yes (Hospitalization)
  Sender: FDA-Public Use
  Company Number: None

PATIENT
  Age: 55 Year
  Sex: Male
  Weight: 98.8842 kg

DRUGS (11)
  1. DOXORUBICIN HCL [Suspect]
     Indication: LEIOMYOSARCOMA
     Dosage: 75MG/M2, Q21D1-3, IV
     Route: 042
     Dates: start: 20080124, end: 20080126
  2. IFOSFAMIDE [Suspect]
     Dosage: 2.5G/M2, Q21D1-3, IV
     Route: 042
     Dates: start: 20080124, end: 20080126
  3. MESNA [Concomitant]
  4. FILGRASTIM [Concomitant]
  5. COMPAZINE [Concomitant]
  6. DEXAMETHASONE TAB [Concomitant]
  7. LORAZEPAM [Concomitant]
  8. ZOFRAN [Concomitant]
  9. AMBIEN [Concomitant]
  10. METOPROLOL SUCCINATE [Concomitant]
  11. LEVOFLOXACIN [Concomitant]

REACTIONS (1)
  - FEBRILE NEUTROPENIA [None]
